FAERS Safety Report 5050846-4 (Version None)
Quarter: 2006Q3

REPORT INFORMATION
  Report Type: 
  Country: None (occurrence: None)
  Receive Date: 20060710
  Receipt Date: 20060627
  Transmission Date: 20061208
  Serious: Yes (Hospitalization)
  Sender: FDA-Public Use
  Company Number: B0429646A

PATIENT
  Age: 7 Year
  Sex: Female

DRUGS (2)
  1. AUGMENTIN '250' [Suspect]
  2. ACETAMINOPHEN [Concomitant]

REACTIONS (6)
  - ENANTHEMA [None]
  - EPSTEIN-BARR VIRUS ANTIBODY POSITIVE [None]
  - ERYTHEMA MULTIFORME [None]
  - MONONUCLEOSIS SYNDROME [None]
  - SKIN HYPERPIGMENTATION [None]
  - SKIN TEST POSITIVE [None]
